FAERS Safety Report 5207967-2 (Version None)
Quarter: 2007Q1

REPORT INFORMATION
  Report Type: 
  Country: None (occurrence: None)
  Receive Date: 20070110
  Receipt Date: 20061228
  Transmission Date: 20070707
  Serious: Yes (Other)
  Sender: FDA-Public Use
  Company Number: TCI2006A06128

PATIENT
  Age: 63 Year
  Sex: Female

DRUGS (3)
  1. ACTOS [Suspect]
     Indication: DIABETES MELLITUS
     Dosage: 15 MG (15 MG, 1 D) PER ORAL
     Route: 048
     Dates: start: 20061225, end: 20061226
  2. BLOPRESS (CANDESARTAN CILEXETIL) [Concomitant]
  3. PRAVASTATIN [Concomitant]

REACTIONS (1)
  - URTICARIA GENERALISED [None]
